FAERS Safety Report 7260817-5 (Version None)
Quarter: 2011Q1

REPORT INFORMATION
  Report Type: 
  Country: None (occurrence: None)
  Receive Date: 20110130
  Receipt Date: 20101111
  Transmission Date: 20110831
  Serious: No
  Sender: FDA-Public Use
  Company Number: US-ABBOTT-10P-163-0684961-00

PATIENT

DRUGS (5)
  1. HUMIRA [Suspect]
     Indication: RHEUMATOID ARTHRITIS
     Dates: start: 20100924
  2. METHOTREXATE [Concomitant]
     Indication: RHEUMATOID ARTHRITIS
     Dates: end: 20100901
  3. METHOTREXATE [Concomitant]
     Dates: start: 20100901
  4. PREDNISONE [Concomitant]
     Dates: start: 20100901
  5. PREDNISONE [Concomitant]
     Indication: RHEUMATOID ARTHRITIS
     Dates: end: 20100901

REACTIONS (2)
  - DRUG EFFECT DECREASED [None]
  - RHEUMATOID ARTHRITIS [None]
